FAERS Safety Report 9399271 (Version 1)
Quarter: 2013Q3

REPORT INFORMATION
  Report Type: Spontaneous
  Country: US (occurrence: None)
  Receive Date: 20130709
  Receipt Date: 20130709
  Transmission Date: 20140515
  Serious: Yes (Hospitalization)
  Sender: FDA-Public Use
  Company Number: 149096

PATIENT
  Age: 74 Year
  Sex: Female

DRUGS (1)
  1. MIDAZOLAM [Suspect]

REACTIONS (4)
  - Convulsion [None]
  - Blood pressure decreased [None]
  - Renal impairment [None]
  - Slow response to stimuli [None]
